FAERS Safety Report 4557590-8 (Version None)
Quarter: 2005Q1

REPORT INFORMATION
  Report Type: 
  Country: None (occurrence: None)
  Receive Date: 20050103
  Receipt Date: 20040830
  Transmission Date: 20050727
  Serious: Yes (Other)
  Sender: FDA-Public Use
  Company Number: 2004UW18268

PATIENT
  Age: 75 Year
  Sex: Female
  Weight: 81.6475 kg

DRUGS (3)
  1. CRESTOR [Suspect]
     Indication: BLOOD CHOLESTEROL INCREASED
     Dosage: 10 MG DAILY PO
     Route: 048
     Dates: start: 20040828
  2. PROTONIX [Concomitant]
  3. ZESTORETIC [Concomitant]

REACTIONS (1)
  - DRY MOUTH [None]
